FAERS Safety Report 13660841 (Version 2)
Quarter: 2017Q3

REPORT INFORMATION
  Report Type: Spontaneous
  Country: US (occurrence: US)
  Receive Date: 20170616
  Receipt Date: 20170811
  Transmission Date: 20171127
  Serious: Yes (Other)
  Sender: FDA-Public Use
  Company Number: US-MALLINCKRODT-T201702511

PATIENT
  Sex: Female
  Weight: 52 kg

DRUGS (2)
  1. METHADOSE [Suspect]
     Active Substance: METHADONE HYDROCHLORIDE
     Indication: NEURALGIA
     Dosage: 5 MG, TID
     Route: 048
     Dates: end: 201610
  2. OXYCONTIN [Suspect]
     Active Substance: OXYCODONE HYDROCHLORIDE
     Indication: PRODUCT USED FOR UNKNOWN INDICATION
     Dosage: UNK
     Route: 048

REACTIONS (9)
  - Pulmonary embolism [Unknown]
  - Coagulopathy [Unknown]
  - Bone density decreased [Unknown]
  - Emotional distress [Unknown]
  - Haemorrhage [Unknown]
  - Tooth loss [Unknown]
  - Cerebrovascular accident [Unknown]
  - Tooth disorder [Unknown]
  - Procedural pain [Unknown]

NARRATIVE: CASE EVENT DATE: 2015
